FAERS Safety Report 20795574 (Version 1)
Quarter: 2022Q2

REPORT INFORMATION
  Report Type: Spontaneous
  Country: US (occurrence: None)
  Receive Date: 20220504
  Receipt Date: 20220504
  Transmission Date: 20220720
  Serious: No
  Sender: FDA-Public Use
  Company Number: None

PATIENT
  Sex: Male

DRUGS (2)
  1. TESTOSTERONE / ANASTROZOLE [Suspect]
     Active Substance: ANASTROZOLE\TESTOSTERONE
     Indication: Hormone replacement therapy
     Dosage: FREQUENCY : WEEKLY;?
     Route: 030
     Dates: start: 20210921
  2. Gonadorelin 0.2mg/ml [Concomitant]

REACTIONS (5)
  - Recalled product administered [None]
  - Injection site reaction [None]
  - Injection site pain [None]
  - Injection site pain [None]
  - Urticaria [None]
